FAERS Safety Report 18733272 (Version 1)
Quarter: 2021Q1

REPORT INFORMATION
  Report Type: Spontaneous
  Country: US (occurrence: US)
  Receive Date: 20210113
  Receipt Date: 20210113
  Transmission Date: 20210419
  Serious: Yes (Death, Other)
  Sender: FDA-Public Use
  Company Number: US-MICRO LABS LIMITED-ML2021-00077

PATIENT

DRUGS (3)
  1. LEVOFLOXACIN. [Suspect]
     Active Substance: LEVOFLOXACIN
  2. AMIODARONE [Suspect]
     Active Substance: AMIODARONE
  3. CABOZANTINIB [Suspect]
     Active Substance: CABOZANTINIB
     Indication: NEOPLASM MALIGNANT

REACTIONS (3)
  - Ventricular tachycardia [Unknown]
  - Sudden cardiac death [Fatal]
  - Torsade de pointes [Unknown]
